FAERS Safety Report 6150701-2 (Version None)
Quarter: 2009Q2

REPORT INFORMATION
  Report Type: 
  Country: None (occurrence: None)
  Receive Date: 20090409
  Receipt Date: 20090331
  Transmission Date: 20091009
  Serious: Yes (Other)
  Sender: FDA-Public Use
  Company Number: PHHY2009CA12353

PATIENT
  Age: 56 Year
  Sex: Female

DRUGS (3)
  1. RASILEZ [Suspect]
     Indication: HYPERTENSION
     Dosage: 150 MG, UNK
  2. RASILEZ [Suspect]
     Dosage: 300 MG, UNK
  3. RASILEZ [Suspect]
     Dosage: 150 MG, QD

REACTIONS (5)
  - BLOOD PRESSURE INADEQUATELY CONTROLLED [None]
  - FATIGUE [None]
  - LIP SWELLING [None]
  - SWELLING FACE [None]
  - URTICARIA [None]
